FAERS Safety Report 5061572-X (Version None)
Quarter: 2006Q3

REPORT INFORMATION
  Report Type: 
  Country: None (occurrence: None)
  Receive Date: 20060703
  Receipt Date: 20060302
  Transmission Date: 20061208
  Serious: No
  Sender: FDA-Public Use
  Company Number: 2006PV009591

PATIENT
  Age: 61 Year
  Sex: Female

DRUGS (2)
  1. SYMLIN [Suspect]
     Indication: DIABETES MELLITUS NON-INSULIN-DEPENDENT
     Dosage: 120 MCG;TID;SC
     Route: 058
     Dates: start: 20060215
  2. HUMALOG [Concomitant]

REACTIONS (3)
  - BLOOD GLUCOSE INCREASED [None]
  - MEDICATION ERROR [None]
  - WEIGHT DECREASED [None]
